APPROVED DRUG PRODUCT: SOTYLIZE
Active Ingredient: SOTALOL HYDROCHLORIDE
Strength: 5MG/ML (5MG/ML)
Dosage Form/Route: SOLUTION;ORAL
Application: N205108 | Product #001
Applicant: AZURITY PHARMACEUTICALS INC
Approved: Oct 22, 2014 | RLD: Yes | RS: Yes | Type: RX

PATENTS:
Patent 10206895 | Expires: Apr 1, 2034
Patent 12290495 | Expires: Apr 1, 2034
Patent 12290495 | Expires: Apr 1, 2034
Patent 10206895 | Expires: Apr 1, 2034
Patent 9724297 | Expires: Aug 31, 2035
Patent 11850222 | Expires: Nov 19, 2034
Patent 11850222 | Expires: Nov 19, 2034
Patent 11013703 | Expires: Apr 1, 2034